FAERS Safety Report 14093940 (Version 1)
Quarter: 2017Q4

REPORT INFORMATION
  Report Type: Spontaneous
  Country: US (occurrence: US)
  Receive Date: 20171016
  Receipt Date: 20171016
  Transmission Date: 20180321
  Serious: No
  Sender: FDA-Public Use
  Company Number: PHEH2017US032788

PATIENT
  Sex: Female

DRUGS (1)
  1. AMITRIPTYLINE HCL TABLETS USP [Suspect]
     Active Substance: AMITRIPTYLINE HYDROCHLORIDE
     Indication: PRODUCT USED FOR UNKNOWN INDICATION
     Dosage: 1 DF, QHS
     Route: 048

REACTIONS (5)
  - Oral pain [Not Recovered/Not Resolved]
  - Tongue discomfort [Not Recovered/Not Resolved]
  - Oropharyngeal pain [Not Recovered/Not Resolved]
  - Wrong technique in product usage process [Unknown]
  - Oral discomfort [Not Recovered/Not Resolved]
